FAERS Safety Report 9188696 (Version 2)
Quarter: 2013Q2

REPORT INFORMATION
  Report Type: Spontaneous
  Country: US (occurrence: US)
  Receive Date: 20130325
  Receipt Date: 20130404
  Transmission Date: 20140414
  Serious: Yes (Other)
  Sender: FDA-Public Use
  Company Number: CHPA2010US14727

PATIENT
  Age: 80 Year
  Sex: Female
  Weight: 95.24 kg

DRUGS (4)
  1. VOLTAREN GEL [Suspect]
     Indication: OSTEOPOROSIS
     Dosage: 2 G, QID
     Route: 061
     Dates: start: 201009
  2. VOLTAREN GEL [Suspect]
     Indication: OSTEOARTHRITIS
     Dosage: UNK
  3. VOLTAREN GEL [Suspect]
     Indication: PAIN IN EXTREMITY
  4. BABY ASPIRIN [Concomitant]
     Indication: ATRIAL FIBRILLATION
     Dosage: UNK, UNK

REACTIONS (4)
  - Pain in extremity [Not Recovered/Not Resolved]
  - Drug ineffective for unapproved indication [Unknown]
  - Drug administered at inappropriate site [Unknown]
  - Wrong technique in drug usage process [Unknown]
